FAERS Safety Report 4748848-8 (Version None)
Quarter: 2005Q3

REPORT INFORMATION
  Report Type: 
  Country: None (occurrence: None)
  Receive Date: 20050819
  Receipt Date: 20050720
  Transmission Date: 20060218
  Serious: Yes (Life-Threatening, Hospitalization, Other)
  Sender: FDA-Public Use
  Company Number: US-GLAXOSMITHKLINE-A0567026A

PATIENT
  Sex: Male
  Weight: 70 kg

DRUGS (3)
  1. WELLBUTRIN [Suspect]
     Indication: DEPRESSION
     Dosage: 150MG PER DAY
     Route: 048
     Dates: start: 20050419, end: 20050714
  2. LIPITOR [Concomitant]
     Dosage: 10MG PER DAY
  3. HYDROCHLOROTHIAZIDE [Concomitant]
     Indication: HYPERTENSION
     Dosage: 25MG PER DAY

REACTIONS (3)
  - DIZZINESS [None]
  - HEMIPARESIS [None]
  - VENTRICULAR TACHYCARDIA [None]
